FAERS Safety Report 5032905-5 (Version None)
Quarter: 2006Q2

REPORT INFORMATION
  Report Type: 
  Country: None (occurrence: None)
  Receive Date: 20060622
  Receipt Date: 20060512
  Transmission Date: 20061013
  Serious: Yes (Other)
  Sender: FDA-Public Use
  Company Number: PHNU2006DE01971

PATIENT
  Age: 66 Year
  Sex: Male

DRUGS (1)
  1. ZOMETA [Suspect]
     Indication: METASTASES TO BONE
     Dosage: 4 MG, QMO
     Route: 042
     Dates: start: 20051001, end: 20060401

REACTIONS (5)
  - DENTAL TREATMENT [None]
  - MANDIBULECTOMY [None]
  - OSTEONECROSIS [None]
  - OSTEOSYNTHESIS [None]
  - RADIATION INJURY [None]
